FAERS Safety Report 25756566 (Version 1)
Quarter: 2025Q3

REPORT INFORMATION
  Report Type: Report from Study
  Country: US (occurrence: US)
  Receive Date: 20250903
  Receipt Date: 20250903
  Transmission Date: 20251021
  Serious: Yes (Hospitalization, Other)
  Sender: OTSUKA
  Company Number: US-OTSUKA-2024_033233

PATIENT
  Sex: Male

DRUGS (2)
  1. TOLVAPTAN [Suspect]
     Active Substance: TOLVAPTAN
     Indication: Congenital cystic kidney disease
     Route: 065
     Dates: start: 20241029
  2. TOLVAPTAN [Suspect]
     Active Substance: TOLVAPTAN
     Route: 065
     Dates: start: 20241202

REACTIONS (7)
  - Cardiac failure chronic [Not Recovered/Not Resolved]
  - Glomerular filtration rate decreased [Unknown]
  - Varicose vein [Unknown]
  - Somnambulism [Unknown]
  - Blood creatinine increased [Unknown]
  - Nausea [Unknown]
  - Thirst [Unknown]

NARRATIVE: CASE EVENT DATE: 20241201
